FAERS Safety Report 7784482-3 (Version None)
Quarter: 2011Q3

REPORT INFORMATION
  Report Type: 
  Country: None (occurrence: None)
  Receive Date: 20110928
  Receipt Date: 20110920
  Transmission Date: 20111222
  Serious: Yes (Other)
  Sender: FDA-Public Use
  Company Number: US-SANOFI-AVENTIS-2011SA061901

PATIENT
  Age: 78 Year
  Sex: Female

DRUGS (2)
  1. LANTUS [Suspect]
     Dosage: 8 UNITS AND 18 UNITS DAILY
     Route: 058
     Dates: start: 20100101
  2. SOLOSTAR [Suspect]
     Dosage: 8 UNITS AND 18 UNITS DAILY
     Route: 058
     Dates: start: 20100101

REACTIONS (1)
  - CAROTID ARTERY BYPASS [None]
